FAERS Safety Report 21138001 (Version 2)
Quarter: 2022Q3

REPORT INFORMATION
  Report Type: Spontaneous
  Country: ES (occurrence: ES)
  Receive Date: 20220727
  Receipt Date: 20220727
  Transmission Date: 20221027
  Serious: Yes (Life-Threatening, Hospitalization)
  Sender: FDA-Public Use
  Company Number: None

PATIENT
  Age: 17 Year
  Sex: Male

DRUGS (2)
  1. PREGABALIN [Interacting]
     Active Substance: PREGABALIN
     Indication: Substance use
     Dosage: 300 MG, SINGLE
     Route: 048
     Dates: start: 20220311, end: 20220311
  2. CLONAZEPAM [Interacting]
     Active Substance: CLONAZEPAM
     Indication: Substance use
     Dosage: 18 MG, SINGLE
     Route: 048
     Dates: start: 20220311, end: 20220311

REACTIONS (3)
  - Drug abuse [Recovered/Resolved]
  - Drug interaction [Recovered/Resolved]
  - Depressed level of consciousness [Recovered/Resolved]

NARRATIVE: CASE EVENT DATE: 20220311
